FAERS Safety Report 20820787 (Version 4)
Quarter: 2023Q2

REPORT INFORMATION
  Report Type: Report from Study
  Country: US (occurrence: US)
  Receive Date: 20220512
  Receipt Date: 20230415
  Transmission Date: 20230721
  Serious: Yes (Other)
  Sender: FDA-Public Use
  Company Number: US-002147023-NVSC2022US108731

PATIENT
  Age: 53 Year
  Sex: Female

DRUGS (1)
  1. KESIMPTA [Suspect]
     Active Substance: OFATUMUMAB
     Indication: Multiple sclerosis
     Dosage: 20 MG, QW
     Route: 058
     Dates: start: 20220414

REACTIONS (4)
  - Hemiparesis [Unknown]
  - Influenza like illness [Recovered/Resolved with Sequelae]
  - Headache [Recovered/Resolved with Sequelae]
  - Pain [Unknown]

NARRATIVE: CASE EVENT DATE: 20220414
